FAERS Safety Report 19196756 (Version 1)
Quarter: 2021Q2

REPORT INFORMATION
  Report Type: Report from Study
  Country: JP (occurrence: JP)
  Receive Date: 20210429
  Receipt Date: 20210429
  Transmission Date: 20210717
  Serious: Yes (Hospitalization)
  Sender: FDA-Public Use
  Company Number: JP-ROCHE-2015013

PATIENT
  Age: 61 Year
  Sex: Female
  Weight: 48.8 kg

DRUGS (24)
  1. EMEND [Suspect]
     Active Substance: APREPITANT
     Route: 065
     Dates: start: 20171024, end: 20171026
  2. FEXOFENADINE HYDROCHLORIDE. [Concomitant]
     Active Substance: FEXOFENADINE HYDROCHLORIDE
     Indication: ERYTHEMA MULTIFORME
     Dates: start: 20170905, end: 20180110
  3. POLARAMINE [Concomitant]
     Active Substance: DEXCHLORPHENIRAMINE MALEATE
     Dates: start: 20171024, end: 20171024
  4. CARBOPLATIN. [Suspect]
     Active Substance: CARBOPLATIN
     Indication: OVARIAN CANCER
     Dosage: AT A DOSE TO ACHIEVE A TARGET AREA UNDER THE CURVE (AUC) OF 6 MILLIGRAMS PER MILLILITER*MINUTE (MG/M
     Route: 042
     Dates: start: 20170809
  5. EMEND [Suspect]
     Active Substance: APREPITANT
     Indication: NAUSEA
     Route: 065
     Dates: start: 20171003, end: 20171005
  6. AMLODIPINE [Concomitant]
     Active Substance: AMLODIPINE BESYLATE
     Indication: HYPERTENSION
     Dates: start: 20170915
  7. ALOXI [Concomitant]
     Active Substance: PALONOSETRON HYDROCHLORIDE
     Route: 042
     Dates: start: 20171024, end: 20171024
  8. POLARAMINE [Concomitant]
     Active Substance: DEXCHLORPHENIRAMINE MALEATE
     Dates: start: 20171114, end: 20171114
  9. ATEZOLIZUMAB. [Suspect]
     Active Substance: ATEZOLIZUMAB
     Indication: OVARIAN CANCER
     Dosage: ON DAY 1 OF EACH 21?DAY CYCLE?MOST RECENT DOSE PRIOR TO FIRST EPISODE OF FEVER: 24/OCT/2017?MOST REC
     Route: 042
     Dates: start: 20170809
  10. RANITIDINE. [Concomitant]
     Active Substance: RANITIDINE
     Indication: PREMEDICATION
     Dates: start: 20171003, end: 20171003
  11. RANITIDINE. [Concomitant]
     Active Substance: RANITIDINE
     Dates: start: 20171114, end: 20171114
  12. LACTEC G [Concomitant]
     Active Substance: CALCIUM CHLORIDE\POTASSIUM CHLORIDE\SODIUM CHLORIDE\SODIUM LACTATE\SORBITOL
     Indication: DEHYDRATION
     Dates: start: 20171025, end: 20171025
  13. POVIDONE?IODINE. [Concomitant]
     Active Substance: POVIDONE-IODINE
     Indication: NASOPHARYNGITIS
     Dates: start: 20171114, end: 20171121
  14. PACLITAXEL. [Suspect]
     Active Substance: PACLITAXEL
     Indication: OVARIAN CANCER
     Dosage: DAY 1 OF EACH 21?DAY CYCLE?MOST RECENT DOSE PRIOR TO FIRST EPISODE OF FEVER: 24/OCT/2017 (DOSE: 253
     Route: 042
     Dates: start: 20170809
  15. DEXALTIN [Concomitant]
     Active Substance: DEXAMETHASONE
     Indication: STOMATITIS
     Route: 048
     Dates: start: 20170825
  16. ALOXI [Concomitant]
     Active Substance: PALONOSETRON HYDROCHLORIDE
     Route: 042
     Dates: start: 20171114, end: 20171114
  17. RANITIDINE. [Concomitant]
     Active Substance: RANITIDINE
     Dates: start: 20171024, end: 20171024
  18. POLARAMINE [Concomitant]
     Active Substance: DEXCHLORPHENIRAMINE MALEATE
     Indication: PREMEDICATION
     Dates: start: 20171003, end: 20171003
  19. DEXART [Concomitant]
     Active Substance: DEXAMETHASONE SODIUM PHOSPHATE
     Route: 042
     Dates: start: 20171024, end: 20171024
  20. BEVACIZUMAB. [Suspect]
     Active Substance: BEVACIZUMAB
     Indication: OVARIAN CANCER
     Dosage: MOST RECENT DOSE PRIOR TO FIRST EPISODE OF FEVER: 24/OCT/2017 (DOSE: 730 MG)?MOST RECENT DOSE PRIOR
     Route: 042
     Dates: start: 20170905
  21. EMEND [Suspect]
     Active Substance: APREPITANT
     Route: 065
     Dates: start: 20171114, end: 20171116
  22. DEXART [Concomitant]
     Active Substance: DEXAMETHASONE SODIUM PHOSPHATE
     Route: 042
     Dates: start: 20171114, end: 20171114
  23. ALOXI [Concomitant]
     Active Substance: PALONOSETRON HYDROCHLORIDE
     Indication: PREMEDICATION
     Route: 042
     Dates: start: 20171003, end: 20171003
  24. DEXART [Concomitant]
     Active Substance: DEXAMETHASONE SODIUM PHOSPHATE
     Indication: PREMEDICATION
     Route: 042
     Dates: start: 20171003, end: 20171003

REACTIONS (1)
  - Pyrexia [Recovered/Resolved]

NARRATIVE: CASE EVENT DATE: 20171025
